FAERS Safety Report 4523155-7 (Version None)
Quarter: 2004Q4

REPORT INFORMATION
  Report Type: 
  Country: None (occurrence: None)
  Receive Date: 20041208
  Receipt Date: 20041125
  Transmission Date: 20050328
  Serious: Yes (Hospitalization)
  Sender: FDA-Public Use
  Company Number: 045-0981-M0000039

PATIENT
  Age: 55 Year
  Sex: Male
  Weight: 77 kg

DRUGS (5)
  1. ATORVASTATIN           (ATORVASTATIN) [Suspect]
     Indication: ACUTE MYOCARDIAL INFARCTION
     Dosage: 80 MG (1 IN 1 D), ORAL
     Route: 048
     Dates: start: 20000324, end: 20000501
  2. AMLODIPINE [Concomitant]
  3. POTASSIUM CHLORIDE [Concomitant]
  4. ALBYL-ENTEROSOLUBILE              (ACETYLSALICYLIC ACID, MAGNESIUM OXI [Concomitant]
  5. FUROSEMIDE [Concomitant]

REACTIONS (9)
  - CARDIAC FAILURE [None]
  - CORONARY ARTERY ATHEROSCLEROSIS [None]
  - CORONARY ARTERY REOCCLUSION [None]
  - FEELING ABNORMAL [None]
  - HEPATITIS [None]
  - NAUSEA [None]
  - PYREXIA [None]
  - RENAL FAILURE [None]
  - VOMITING [None]
